FAERS Safety Report 9413547 (Version 4)
Quarter: 2013Q1

REPORT INFORMATION
  Report Type: Spontaneous
  Country: US (occurrence: None)
  Receive Date: 20110923
  Receipt Date: 20121023
  Transmission Date: 20140127
  Serious: Yes (Death, Life-Threatening, Hospitalization)
  Sender: FDA-Public Use
  Company Number: 123268

PATIENT
  Age: 44 Year
  Sex: Male

DRUGS (1)
  1. DAUNORUBICIN HCL [Suspect]
     Indication: ACUTE MYELOID LEUKAEMIA
     Dates: start: 20110725, end: 20110824

REACTIONS (7)
  - Delirium [None]
  - Hallucination [None]
  - Clostridial infection [None]
  - Hypoaesthesia [None]
  - Neutropenia [None]
  - Encephalopathy [None]
  - Neutropenic sepsis [None]
